FAERS Safety Report 6257393-2 (Version None)
Quarter: 2009Q3

REPORT INFORMATION
  Report Type: 
  Country: None (occurrence: None)
  Receive Date: 20090701
  Receipt Date: 20090701
  Transmission Date: 20100115
  Serious: No
  Sender: FDA-Public Use
  Company Number: None

PATIENT
  Age: 32 Year
  Sex: Female
  Weight: 104.3273 kg

DRUGS (2)
  1. ZICAM [Suspect]
     Indication: MULTIPLE ALLERGIES
     Dosage: ONCE DAILY NASAL
     Route: 045
     Dates: start: 20080605, end: 20080612
  2. ZICAM [Suspect]
     Indication: NASOPHARYNGITIS
     Dosage: ONCE DAILY NASAL
     Route: 045
     Dates: start: 20080605, end: 20080612

REACTIONS (1)
  - ANOSMIA [None]
